FAERS Safety Report 7138289-0 (Version None)
Quarter: 2010Q4

REPORT INFORMATION
  Report Type: 
  Country: None (occurrence: None)
  Receive Date: 20101206
  Receipt Date: 20050207
  Transmission Date: 20110411
  Serious: Yes (Other)
  Sender: FDA-Public Use
  Company Number: AU-ROCHE-742490

PATIENT
  Sex: Female

DRUGS (1)
  1. ISOTRETINOIN [Suspect]
     Indication: ACNE
     Route: 065

REACTIONS (4)
  - AGITATION [None]
  - DEPRESSION [None]
  - INSOMNIA [None]
  - SUICIDE ATTEMPT [None]
